FAERS Safety Report 24887968 (Version 1)
Quarter: 2025Q1

REPORT INFORMATION
  Report Type: Spontaneous
  Country: CA (occurrence: CA)
  Receive Date: 20250127
  Receipt Date: 20250127
  Transmission Date: 20250409
  Serious: Yes (Hospitalization, Other)
  Sender: BOEHRINGER INGELHEIM
  Company Number: CA-BoehringerIngelheim-2025-BI-003643

PATIENT
  Age: 56 Year
  Sex: Male

DRUGS (1)
  1. JARDIANCE [Suspect]
     Active Substance: EMPAGLIFLOZIN
     Indication: Product used for unknown indication

REACTIONS (11)
  - Septic shock [Recovering/Resolving]
  - Acute kidney injury [Recovering/Resolving]
  - Candida test positive [Recovering/Resolving]
  - Dysuria [Recovering/Resolving]
  - Haematuria [Recovering/Resolving]
  - Hyperhidrosis [Recovering/Resolving]
  - Pyrexia [Recovering/Resolving]
  - Prostatism [Recovering/Resolving]
  - Pyelonephritis [Recovering/Resolving]
  - Klebsiella test positive [Recovering/Resolving]
  - Systemic candida [Recovering/Resolving]
